FAERS Safety Report 7711404-3 (Version None)
Quarter: 2011Q3

REPORT INFORMATION
  Report Type: 
  Country: None (occurrence: None)
  Receive Date: 20110826
  Receipt Date: 20110823
  Transmission Date: 20111222
  Serious: Yes (Hospitalization, Other)
  Sender: FDA-Public Use
  Company Number: US-AMGEN-USASP2011043110

PATIENT
  Age: 58 Year
  Sex: Female

DRUGS (5)
  1. PLACEBO [Suspect]
     Indication: BREAST CANCER
     Dosage: 10 MG/KG, UNK
     Dates: start: 20080512
  2. DOXORUBICIN HCL [Suspect]
     Indication: BREAST CANCER
     Dosage: 60 MG/M2, UNK
     Dates: start: 20080512
  3. NEULASTA [Suspect]
     Indication: BREAST CANCER
     Dosage: 6 MG, UNK
     Route: 058
     Dates: start: 20080512
  4. AVASTIN [Suspect]
     Indication: BREAST CANCER
     Dosage: 10 MG/KG, UNK
     Route: 042
     Dates: start: 20080512
  5. CYCLOPHOSPHAMIDE [Suspect]
     Indication: BREAST CANCER
     Dosage: 600 MG/M2, UNK
     Dates: start: 20080512

REACTIONS (2)
  - HAEMORRHAGE [None]
  - HAEMORRHOIDS [None]
